FAERS Safety Report 24346041 (Version 1)
Quarter: 2024Q3

REPORT INFORMATION
  Report Type: Report from Study
  Country: BR (occurrence: BR)
  Receive Date: 20240921
  Receipt Date: 20240921
  Transmission Date: 20241016
  Serious: Yes (Life-Threatening, Other)
  Sender: NOVARTIS
  Company Number: BR-002147023-NVSC2024BR132861

PATIENT
  Age: 60 Year
  Sex: Female

DRUGS (4)
  1. KISQALI [Suspect]
     Active Substance: RIBOCICLIB
     Indication: Breast cancer stage IV
     Dosage: 3 DOSAGE FORM, QD
     Route: 048
  2. KISQALI [Suspect]
     Active Substance: RIBOCICLIB
     Indication: Hormone receptor positive breast cancer
     Dosage: 2 DOSAGE FORM (OTHER/ 02 TABLETS A DAY), QD
     Route: 048
     Dates: start: 20240523
  3. ANASTROZOLE [Concomitant]
     Active Substance: ANASTROZOLE
     Indication: Breast cancer stage IV
     Dosage: 1 DOSAGE FORM, QD
     Route: 048
     Dates: start: 20240105
  4. ANASTROZOLE [Concomitant]
     Active Substance: ANASTROZOLE
     Indication: Hormone receptor positive breast cancer

REACTIONS (6)
  - Neutrophil count decreased [Unknown]
  - White blood cell count abnormal [Recovered/Resolved]
  - Red blood cell count abnormal [Recovered/Resolved]
  - Alopecia [Recovered/Resolved]
  - White blood cell count abnormal [Recovering/Resolving]
  - Red blood cell count abnormal [Recovering/Resolving]

NARRATIVE: CASE EVENT DATE: 20240304
